FAERS Safety Report 25176897 (Version 1)
Quarter: 2025Q2

REPORT INFORMATION
  Report Type: Spontaneous
  Country: DK (occurrence: DK)
  Receive Date: 20250409
  Receipt Date: 20250409
  Transmission Date: 20250717
  Serious: Yes (Death, Life-Threatening, Other)
  Sender: TEVA
  Company Number: None

PATIENT
  Age: 43 Year
  Sex: Male
  Weight: 69 kg

DRUGS (1)
  1. DISULFIRAM [Suspect]
     Active Substance: DISULFIRAM
     Indication: Alcoholism
     Route: 048
     Dates: start: 20250220, end: 20250309

REACTIONS (2)
  - Acute kidney injury [Fatal]
  - Acute hepatic failure [Fatal]

NARRATIVE: CASE EVENT DATE: 20250220
